FAERS Safety Report 9912683 (Version 1)
Quarter: 2014Q1

REPORT INFORMATION
  Report Type: Spontaneous
  Country: US (occurrence: None)
  Receive Date: 20140218
  Receipt Date: 20140218
  Transmission Date: 20141002
  Serious: Yes (Other)
  Sender: FDA-Public Use
  Company Number: None

PATIENT
  Age: 43 Year
  Sex: Female
  Weight: 54.43 kg

DRUGS (1)
  1. TECFIDERA 240MG BIOGEN [Suspect]
     Indication: RELAPSING-REMITTING MULTIPLE SCLEROSIS
     Dosage: 1
     Route: 048
     Dates: start: 20140126, end: 20140201

REACTIONS (7)
  - Abdominal pain upper [None]
  - Vomiting [None]
  - Flushing [None]
  - Rash [None]
  - Hot flush [None]
  - Decreased appetite [None]
  - Activities of daily living impaired [None]
